FAERS Safety Report 17406042 (Version 1)
Quarter: 2020Q1

REPORT INFORMATION
  Report Type: Spontaneous
  Country: IR (occurrence: IR)
  Receive Date: 20200212
  Receipt Date: 20200212
  Transmission Date: 20200409
  Serious: Yes (Death, Hospitalization)
  Sender: FDA-Public Use
  Company Number: IR-RECORDATI RARE DISEASES INC.-IR-R13005-20-00018

PATIENT
  Sex: Female

DRUGS (2)
  1. DACTINOMYCIN [Suspect]
     Active Substance: DACTINOMYCIN
     Indication: NEPHROBLASTOMA
     Route: 065
     Dates: start: 2006
  2. VINCRISTINE [Suspect]
     Active Substance: VINCRISTINE
     Indication: NEPHROBLASTOMA
     Route: 065
     Dates: start: 2006

REACTIONS (9)
  - Aspartate aminotransferase increased [Fatal]
  - Red blood cell count decreased [Fatal]
  - Prothrombin time prolonged [Fatal]
  - Alanine aminotransferase increased [Fatal]
  - Platelet count decreased [Fatal]
  - Haemoglobin decreased [Fatal]
  - Blood alkaline phosphatase increased [Fatal]
  - Blood lactate dehydrogenase increased [Fatal]
  - C-reactive protein increased [Fatal]
